FAERS Safety Report 7612008-3 (Version None)
Quarter: 2011Q3

REPORT INFORMATION
  Report Type: 
  Country: None (occurrence: None)
  Receive Date: 20110715
  Receipt Date: 20110706
  Transmission Date: 20111222
  Serious: Yes (Hospitalization)
  Sender: FDA-Public Use
  Company Number: JP-JNJFOC-20110606105

PATIENT
  Sex: Male

DRUGS (18)
  1. TOPIRAMATE [Suspect]
     Route: 048
     Dates: start: 20101028, end: 20110228
  2. TOPIRAMATE [Suspect]
     Route: 048
     Dates: start: 20110301, end: 20110330
  3. TOPIRAMATE [Suspect]
     Route: 048
     Dates: start: 20110331, end: 20110518
  4. DEPAKENE [Suspect]
     Route: 048
     Dates: start: 20090907
  5. KEPPRA [Suspect]
     Route: 048
     Dates: start: 20110113, end: 20110202
  6. TOPIRAMATE [Suspect]
     Route: 048
     Dates: start: 20100306, end: 20100316
  7. TOPIRAMATE [Suspect]
     Route: 048
     Dates: start: 20101021, end: 20101027
  8. TOPIRAMATE [Suspect]
     Route: 048
     Dates: start: 20100317, end: 20100908
  9. KEPPRA [Suspect]
     Indication: EPILEPSY
     Route: 048
     Dates: start: 20110607
  10. KEPPRA [Suspect]
     Route: 048
     Dates: start: 20110203, end: 20110223
  11. TOPIRAMATE [Suspect]
     Route: 048
     Dates: start: 20101007, end: 20101013
  12. DEPAKENE [Suspect]
     Indication: EPILEPSY
     Route: 048
     Dates: start: 20061014
  13. TOPIRAMATE [Suspect]
     Route: 048
     Dates: start: 20100922, end: 20101006
  14. TOPIRAMATE [Suspect]
     Route: 048
     Dates: start: 20110519
  15. DIAPP [Concomitant]
     Route: 054
     Dates: start: 20110606, end: 20110606
  16. TOPIRAMATE [Suspect]
     Indication: EPILEPSY
     Route: 048
     Dates: start: 20101014, end: 20101020
  17. TOPIRAMATE [Suspect]
     Route: 048
     Dates: start: 20100909, end: 20100921
  18. KEPPRA [Suspect]
     Route: 048
     Dates: start: 20110224, end: 20110606

REACTIONS (3)
  - HALLUCINATION, AUDITORY [None]
  - INSOMNIA [None]
  - HEADACHE [None]
